FAERS Safety Report 8339341 (Version 3)
Quarter: 2017Q4

REPORT INFORMATION
  Report Type: Spontaneous
  Country: US (occurrence: US)
  Receive Date: 20120117
  Receipt Date: 20171227
  Transmission Date: 20180321
  Serious: Yes (Hospitalization, Other)
  Sender: FDA-Public Use
  Company Number: US-PFIZER INC-2012009647

PATIENT
  Age: 71 Year
  Sex: Female

DRUGS (2)
  1. HALCION [Suspect]
     Active Substance: TRIAZOLAM
     Dosage: 5 MG, 1X/DAY, (TWO A DAY AT NIGHT)
     Route: 048
  2. HALCION [Suspect]
     Active Substance: TRIAZOLAM
     Indication: SLEEP DISORDER
     Dosage: 0.25 MG, 1X/DAY
     Route: 048
     Dates: start: 1980

REACTIONS (12)
  - Macular degeneration [Not Recovered/Not Resolved]
  - Drug prescribing error [Unknown]
  - Impaired driving ability [Unknown]
  - Arthropathy [Not Recovered/Not Resolved]
  - Drug dependence [Not Recovered/Not Resolved]
  - Feeling abnormal [Unknown]
  - Somnolence [Unknown]
  - Arthritis [Unknown]
  - Hypertension [Unknown]
  - Fall [Recovering/Resolving]
  - Weight increased [Unknown]
  - Drug effect incomplete [Not Recovered/Not Resolved]

NARRATIVE: CASE EVENT DATE: 2006
